FAERS Safety Report 8386574-7 (Version None)
Quarter: 2012Q2

REPORT INFORMATION
  Report Type: 
  Country: None (occurrence: None)
  Receive Date: 20120525
  Receipt Date: 20110913
  Transmission Date: 20120825
  Serious: No
  Sender: FDA-Public Use
  Company Number: US-GLAXOSMITHKLINE-A0944469A

PATIENT
  Age: 74 Year
  Sex: Male

DRUGS (5)
  1. UNKNOWN MEDICATION [Concomitant]
     Indication: URINARY TRACT DISORDER
  2. VERAMYST [Suspect]
     Indication: RHINITIS ALLERGIC
     Dosage: 1SPR PER DAY
     Route: 045
     Dates: start: 20110910
  3. CEPACOL [Concomitant]
  4. UNKNOWN MEDICATION [Concomitant]
     Indication: GASTROOESOPHAGEAL REFLUX DISEASE
  5. ASPIRIN [Concomitant]

REACTIONS (2)
  - DYSPHAGIA [None]
  - OROPHARYNGEAL PAIN [None]
